FAERS Safety Report 19001452 (Version 1)
Quarter: 2021Q1

REPORT INFORMATION
  Report Type: Spontaneous
  Country: US (occurrence: US)
  Receive Date: 20210312
  Receipt Date: 20210312
  Transmission Date: 20210420
  Serious: No
  Sender: FDA-Public Use
  Company Number: US-BAYER-2021-104047

PATIENT
  Age: 93 Year
  Sex: Male

DRUGS (1)
  1. MIRALAX [Suspect]
     Active Substance: POLYETHYLENE GLYCOL 3350
     Indication: GASTROINTESTINAL DISORDER
     Dosage: QD, LESS THAN A DOSE
     Route: 048
     Dates: start: 2020

REACTIONS (2)
  - Incorrect product administration duration [None]
  - Incorrect dose administered [Unknown]

NARRATIVE: CASE EVENT DATE: 2020
